FAERS Safety Report 24539929 (Version 1)
Quarter: 2024Q4

REPORT INFORMATION
  Report Type: Spontaneous
  Country: US (occurrence: US)
  Receive Date: 20241023
  Receipt Date: 20241023
  Transmission Date: 20250115
  Serious: Yes (Hospitalization, Other)
  Sender: SANOFI AVENTIS
  Company Number: US-SA-2024SA303640

PATIENT
  Age: 26 Year
  Sex: Male

DRUGS (1)
  1. SEVELAMER [Suspect]
     Active Substance: SEVELAMER

REACTIONS (8)
  - Complicated appendicitis [Unknown]
  - Leukocytosis [Unknown]
  - Abdominal pain [Unknown]
  - Pyrexia [Unknown]
  - Malaise [Unknown]
  - Nausea [Unknown]
  - Abdominal tenderness [Unknown]
  - Crystal deposit intestine [Unknown]
